FAERS Safety Report 7544810-0 (Version None)
Quarter: 2011Q2

REPORT INFORMATION
  Report Type: 
  Country: None (occurrence: None)
  Receive Date: 20110614
  Receipt Date: 20110602
  Transmission Date: 20111010
  Serious: Yes (Other)
  Sender: FDA-Public Use
  Company Number: CA-BAYER-2011-041613

PATIENT
  Sex: Female

DRUGS (3)
  1. AVONEX [Concomitant]
     Dosage: UNK
     Dates: start: 20020401, end: 20110401
  2. SYNTHROID [Concomitant]
     Dosage: DAILY DOSE 150 ?G
  3. BETASERON [Suspect]
     Indication: MULTIPLE SCLEROSIS
     Dosage: UNK
     Dates: start: 20110401

REACTIONS (9)
  - PARAESTHESIA [None]
  - MULTIPLE SCLEROSIS [None]
  - PERONEAL NERVE PALSY [None]
  - INJECTION SITE PRURITUS [None]
  - COORDINATION ABNORMAL [None]
  - INJECTION SITE HAEMATOMA [None]
  - FATIGUE [None]
  - BALANCE DISORDER [None]
  - HYPOAESTHESIA [None]
